FAERS Safety Report 6437427-2 (Version None)
Quarter: 2009Q4

REPORT INFORMATION
  Report Type: 
  Country: None (occurrence: None)
  Receive Date: 20091112
  Receipt Date: 20081009
  Transmission Date: 20100525
  Serious: No
  Sender: FDA-Public Use
  Company Number: US-ASTRAZENECA-2009UW15435

PATIENT
  Age: 71 Year
  Sex: Male

DRUGS (3)
  1. PRILOSEC OTC [Suspect]
     Indication: DYSPHAGIA
     Dosage: 1 TABLET, 1 /DAY
     Route: 048
     Dates: start: 20061009, end: 20081009
  2. FLEXERIL [Concomitant]
  3. FIORINAL W/CODEINE [Concomitant]

REACTIONS (1)
  - WEIGHT DECREASED [None]
